FAERS Safety Report 22155061 (Version 1)
Quarter: 2023Q1

REPORT INFORMATION
  Report Type: Spontaneous
  Country: US (occurrence: None)
  Receive Date: 20230329
  Receipt Date: 20230329
  Transmission Date: 20230417
  Serious: Yes (Disabling, Other)
  Sender: FDA-Public Use
  Company Number: None

PATIENT
  Sex: Female

DRUGS (4)
  1. CLEAR EYES MAXIMUM ITCHY EYE RELIEF [Suspect]
     Active Substance: GLYCERIN\NAPHAZOLINE HYDROCHLORIDE\ZINC SULFATE
     Indication: Dry eye
     Route: 047
     Dates: start: 20230324, end: 20230324
  2. NEOMYCIN [Concomitant]
     Active Substance: NEOMYCIN
  3. Polymyxin B Sulfates [Concomitant]
  4. DEXAMETHASONE OPHTHALMIC [Concomitant]
     Active Substance: DEXAMETHASONE

REACTIONS (7)
  - Recalled product administered [None]
  - Instillation site swelling [None]
  - Instillation site erythema [None]
  - Swelling of eyelid [None]
  - Erythema of eyelid [None]
  - Eyelid pain [None]
  - Suspected transmission of an infectious agent via product [None]

NARRATIVE: CASE EVENT DATE: 20230324
